FAERS Safety Report 9228777 (Version 2)
Quarter: 2013Q2

REPORT INFORMATION
  Report Type: Spontaneous
  Country: US (occurrence: US)
  Receive Date: 20130412
  Receipt Date: 20130426
  Transmission Date: 20140414
  Serious: Yes (Other)
  Sender: FDA-Public Use
  Company Number: US-PFIZER INC-2013113059

PATIENT
  Age: 50 Year
  Sex: Female

DRUGS (4)
  1. SERTRALINE HCL [Suspect]
     Indication: POST-TRAUMATIC STRESS DISORDER
     Dosage: UNK
     Route: 065
  2. CITALOPRAM [Suspect]
     Indication: DEPRESSION
     Dosage: UNK
     Route: 065
  3. CITALOPRAM [Suspect]
     Indication: ANXIETY
  4. CITALOPRAM [Suspect]
     Indication: SUICIDAL IDEATION

REACTIONS (11)
  - Suicide attempt [Recovered/Resolved]
  - Homicidal ideation [Recovered/Resolved]
  - Depression [Not Recovered/Not Resolved]
  - Anxiety [Unknown]
  - Withdrawal syndrome [Unknown]
  - Loss of libido [Recovered/Resolved]
  - Somnolence [Unknown]
  - Constipation [Recovered/Resolved]
  - Night sweats [Recovered/Resolved]
  - Fatigue [Recovered/Resolved]
  - Weight increased [Recovered/Resolved]
